FAERS Safety Report 21677429 (Version 4)
Quarter: 2023Q1

REPORT INFORMATION
  Report Type: Other
  Country: US (occurrence: US)
  Receive Date: 20221203
  Receipt Date: 20230106
  Transmission Date: 20230417
  Serious: Yes (Hospitalization, Other)
  Sender: FDA-Public Use
  Company Number: US-GBT-017857

PATIENT
  Age: 4 Year
  Sex: Female

DRUGS (3)
  1. OXBRYTA [Suspect]
     Active Substance: VOXELOTOR
     Indication: Sickle cell disease
     Route: 048
  2. OXBRYTA [Suspect]
     Active Substance: VOXELOTOR
     Indication: Sickle cell disease
     Route: 048
     Dates: start: 20220904
  3. Hydroxyurea 4.9 [Concomitant]
     Indication: Product used for unknown indication
     Dosage: 4.9

REACTIONS (7)
  - Viral myelitis [Recovered/Resolved]
  - Therapy cessation [Unknown]
  - Hospitalisation [Unknown]
  - Respiratory syncytial virus infection [Recovered/Resolved]
  - Rash [Recovered/Resolved]
  - Off label use [Unknown]
  - Constipation [Unknown]

NARRATIVE: CASE EVENT DATE: 20221001
